FAERS Safety Report 5610862-8 (Version None)
Quarter: 2008Q1

REPORT INFORMATION
  Report Type: 
  Country: None (occurrence: None)
  Receive Date: 20080201
  Receipt Date: 20080118
  Transmission Date: 20080703
  Serious: Yes (Other)
  Sender: FDA-Public Use
  Company Number: ES-AMGEN-US261942

PATIENT
  Age: 38 Year
  Sex: Male

DRUGS (3)
  1. ENBREL [Suspect]
     Indication: ANKYLOSING SPONDYLITIS
     Route: 058
     Dates: start: 20071016, end: 20071209
  2. FLURBIPROFEN [Concomitant]
     Dates: start: 20070101
  3. TRAMADOL HCL [Concomitant]
     Route: 048
     Dates: start: 20070101

REACTIONS (1)
  - DRUG EFFECT DECREASED [None]
